FAERS Safety Report 4457545-8 (Version None)
Quarter: 2004Q3

REPORT INFORMATION
  Report Type: 
  Country: None (occurrence: None)
  Receive Date: 20040922
  Receipt Date: 20040902
  Transmission Date: 20050211
  Serious: Yes (Other)
  Sender: FDA-Public Use
  Company Number: USA040977267

PATIENT
  Age: 48 Year
  Sex: Female
  Weight: 64 kg

DRUGS (14)
  1. HUMALOG [Suspect]
     Indication: DIABETES MELLITUS
     Dosage: 0.4 U/HOUR
     Dates: start: 19960101
  2. ASPIRIN [Concomitant]
  3. IMDUR [Concomitant]
  4. CARDIZEM CD [Concomitant]
  5. LIPITOR [Concomitant]
  6. ATENOLOL [Concomitant]
  7. PLAQUENIL [Concomitant]
  8. NEURONTIN [Concomitant]
  9. CAPTOPRIL (CAPTOPRIL BIOCHEMIE) [Concomitant]
  10. LEVOXYL [Concomitant]
  11. ELAVIL [Concomitant]
  12. ZOLOFT [Concomitant]
  13. VIOXX [Concomitant]
  14. PREVACID [Concomitant]

REACTIONS (4)
  - ARTERIAL OCCLUSIVE DISEASE [None]
  - INJECTION SITE HAEMORRHAGE [None]
  - SKIN NODULE [None]
  - SYSTEMIC LUPUS ERYTHEMATOSUS [None]
